FAERS Safety Report 9217034 (Version 1)
Quarter: 2013Q2

REPORT INFORMATION
  Report Type: Spontaneous
  Country: US (occurrence: US)
  Receive Date: 20130408
  Receipt Date: 20130408
  Transmission Date: 20140414
  Serious: Yes (Hospitalization)
  Sender: FDA-Public Use
  Company Number: US-ELI_LILLY_AND_COMPANY-US201302004058

PATIENT
  Age: 65 Year
  Sex: Male
  Weight: 89.34 kg

DRUGS (6)
  1. EFFIENT [Suspect]
     Indication: CORONARY ARTERIAL STENT INSERTION
     Dosage: 10 MG, QD
     Dates: start: 20120313
  2. AMLODIPINE [Concomitant]
  3. ASA [Concomitant]
  4. LIPITOR [Concomitant]
  5. ZETIA [Concomitant]
  6. METOPROLOL [Concomitant]

REACTIONS (1)
  - Chest pain [Recovered/Resolved]
